FAERS Safety Report 15505663 (Version 2)
Quarter: 2019Q1

REPORT INFORMATION
  Report Type: Spontaneous
  Country: US (occurrence: US)
  Receive Date: 20181016
  Receipt Date: 20190118
  Transmission Date: 20190417
  Serious: Yes (Other)
  Sender: FDA-Public Use
  Company Number: US-ACHAOGEN INC-US-ACHN-18-00017

PATIENT
  Age: 69 Year
  Sex: Female

DRUGS (1)
  1. ZEMDRI [Suspect]
     Active Substance: PLAZOMICIN
     Indication: ESCHERICHIA URINARY TRACT INFECTION
     Route: 042

REACTIONS (1)
  - Blood creatinine increased [Recovered/Resolved]

NARRATIVE: CASE EVENT DATE: 201809
